FAERS Safety Report 4725165-3 (Version None)
Quarter: 2005Q3

REPORT INFORMATION
  Report Type: 
  Country: None (occurrence: None)
  Receive Date: 20050721
  Receipt Date: 20050614
  Transmission Date: 20060218
  Serious: No
  Sender: FDA-Public Use
  Company Number: 2005SP001442

PATIENT
  Age: 66 Year
  Sex: Male
  Weight: 108.8633 kg

DRUGS (12)
  1. LUNESTA [Suspect]
     Indication: INSOMNIA
     Dosage: 2 MG;1X
     Dates: start: 20050613, end: 20050613
  2. AMOXICILLIN [Concomitant]
  3. AVANDIA [Concomitant]
  4. CARDIZEM [Concomitant]
  5. GLUCOTROL [Concomitant]
  6. TENORMIN [Concomitant]
  7. ZOCOR [Concomitant]
  8. NORTRIPTYLINE HCL [Concomitant]
  9. ADVAIR DISKUS 100/50 [Concomitant]
  10. COMBIVENT [Concomitant]
  11. AMBIEN [Concomitant]
  12. COUMADIN [Concomitant]

REACTIONS (2)
  - DRUG INEFFECTIVE [None]
  - INSOMNIA [None]
